FAERS Safety Report 15116799 (Version 2)
Quarter: 2018Q3

REPORT INFORMATION
  Report Type: Spontaneous
  Country: US (occurrence: US)
  Receive Date: 20180706
  Receipt Date: 20180717
  Transmission Date: 20181010
  Serious: Yes (Death, Life-Threatening, Other)
  Sender: FDA-Public Use
  Company Number: US-FRESENIUS KABI-FK201807442

PATIENT
  Age: 53 Year
  Sex: Male
  Weight: 121 kg

DRUGS (3)
  1. STERILE VANCOMYCIN HYDROCHLORIDE, USP [Suspect]
     Active Substance: VANCOMYCIN HYDROCHLORIDE
     Indication: SKIN INFECTION
  2. STERILE VANCOMYCIN HYDROCHLORIDE, USP [Suspect]
     Active Substance: VANCOMYCIN HYDROCHLORIDE
     Indication: SKIN INFECTION
  3. STERILE VANCOMYCIN HYDROCHLORIDE, USP [Suspect]
     Active Substance: VANCOMYCIN HYDROCHLORIDE
     Indication: OSTEOMYELITIS
     Dosage: UNKNOWN
     Route: 042

REACTIONS (4)
  - Unresponsive to stimuli [Fatal]
  - Cardiac arrest [Fatal]
  - Malaise [Fatal]
  - Nausea [Fatal]

NARRATIVE: CASE EVENT DATE: 20180619
